FAERS Safety Report 5838631-4 (Version None)
Quarter: 2008Q3

REPORT INFORMATION
  Report Type: 
  Country: None (occurrence: None)
  Receive Date: 20080808
  Receipt Date: 20080708
  Transmission Date: 20090109
  Serious: No
  Sender: FDA-Public Use
  Company Number: A0735363A

PATIENT
  Age: 77 Year
  Sex: Female

DRUGS (3)
  1. ALTABAX [Suspect]
     Indication: SKIN LESION
     Dosage: 1APP TWICE PER DAY
     Route: 061
     Dates: start: 20080624, end: 20080626
  2. LISINOPRIL [Concomitant]
  3. STATINS [Concomitant]

REACTIONS (3)
  - DRUG INEFFECTIVE [None]
  - ERYTHEMA [None]
  - SKIN IRRITATION [None]
